FAERS Safety Report 8427507-4 (Version None)
Quarter: 2012Q2

REPORT INFORMATION
  Report Type: 
  Country: None (occurrence: None)
  Receive Date: 20120611
  Receipt Date: 20120531
  Transmission Date: 20120825
  Serious: No
  Sender: FDA-Public Use
  Company Number: US-B.I. PHARMACEUTICALS,INC./RIDGEFIELD-2012-BP-09903BP

PATIENT
  Sex: Female

DRUGS (16)
  1. SPIRIVA [Suspect]
     Indication: CHRONIC OBSTRUCTIVE PULMONARY DISEASE
     Dosage: 18 MCG
     Route: 055
     Dates: start: 20120101
  2. FLUTICASONE FUROATE [Concomitant]
     Indication: HYPERSENSITIVITY
     Route: 045
  3. BROVANA [Concomitant]
     Indication: CHRONIC OBSTRUCTIVE PULMONARY DISEASE
     Route: 055
  4. HAWTHORN BERRY [Concomitant]
     Indication: HYPERTENSION
  5. TESSALON [Concomitant]
     Indication: COUGH
     Route: 048
  6. FISH OIL [Concomitant]
     Indication: SUPPLEMENTATION THERAPY
  7. ATIVAN [Concomitant]
     Indication: ANXIETY
     Route: 048
  8. ZANTAC [Concomitant]
     Indication: GASTROOESOPHAGEAL REFLUX DISEASE
     Dosage: 300 MG
     Route: 048
  9. LASIX [Concomitant]
     Indication: OEDEMA
     Route: 048
  10. NAPROXEN [Concomitant]
     Indication: FIBROMYALGIA
     Route: 048
  11. CALCIUM [Concomitant]
     Indication: SUPPLEMENTATION THERAPY
  12. ROBAXIN [Concomitant]
     Indication: FIBROMYALGIA
     Dosage: 3000 MG
     Route: 048
  13. STOOL SOFTENER [Concomitant]
     Indication: CONSTIPATION
  14. VITAMIN A [Concomitant]
     Indication: SUPPLEMENTATION THERAPY
  15. VITAMIN D [Concomitant]
     Indication: SUPPLEMENTATION THERAPY
  16. PANTOPRAZOLE [Concomitant]
     Indication: GASTROOESOPHAGEAL REFLUX DISEASE
     Dosage: 40 MG
     Route: 048

REACTIONS (6)
  - TONGUE DISORDER [None]
  - THROAT IRRITATION [None]
  - TOOTHACHE [None]
  - DYSPHONIA [None]
  - DRY MOUTH [None]
  - BUCCAL MUCOSAL ROUGHENING [None]
